FAERS Safety Report 8919433 (Version 1)
Quarter: 2012Q4

REPORT INFORMATION
  Report Type: 
  Country: MX (occurrence: MX)
  Receive Date: 20121121
  Receipt Date: 20121121
  Transmission Date: 20130627
  Serious: Yes (Other)
  Sender: FDA-Public Use
  Company Number: PHHY2012MX105614

PATIENT
  Age: 50 Year
  Sex: Female

DRUGS (1)
  1. ACLASTA [Suspect]
     Indication: OSTEOPENIA
     Dosage: UNK
     Route: 042

REACTIONS (3)
  - Phlebitis [Unknown]
  - Back pain [Unknown]
  - Myalgia [Unknown]
